FAERS Safety Report 24319862 (Version 1)
Quarter: 2024Q3

REPORT INFORMATION
  Report Type: Spontaneous
  Country: US (occurrence: US)
  Receive Date: 20240914
  Receipt Date: 20240914
  Transmission Date: 20241017
  Serious: Yes (Hospitalization, Other)
  Sender: APOTEX
  Company Number: US-APOTEX-2024AP010315

PATIENT
  Age: 35 Year
  Sex: Male

DRUGS (5)
  1. MODAFINIL [Suspect]
     Active Substance: MODAFINIL
     Indication: Attention deficit hyperactivity disorder
     Dosage: 200 MILLIGRAM, QD
     Route: 065
  2. MODAFINIL [Suspect]
     Active Substance: MODAFINIL
     Indication: Depression
     Dosage: 200 MILLIGRAM, T.I.W
     Route: 048
  3. HERBALS\WITHANIA SOMNIFERA ROOT [Concomitant]
     Active Substance: HERBALS\WITHANIA SOMNIFERA ROOT
     Indication: Product used for unknown indication
     Dosage: UNK, QD
     Route: 048
  4. BUSPIRONE [Concomitant]
     Active Substance: BUSPIRONE HYDROCHLORIDE
     Indication: Product used for unknown indication
     Dosage: 15 MILLIGRAM, BID
     Route: 048
  5. VITAMINS NOS [Concomitant]
     Active Substance: VITAMINS
     Indication: Product used for unknown indication
     Dosage: UNK, QD
     Route: 065

REACTIONS (1)
  - Acute myocardial infarction [Recovering/Resolving]
